FAERS Safety Report 5102581-1 (Version None)
Quarter: 2006Q3

REPORT INFORMATION
  Report Type: 
  Country: None (occurrence: None)
  Receive Date: 20060907
  Receipt Date: 20060825
  Transmission Date: 20061208
  Serious: Yes (Other)
  Sender: FDA-Public Use
  Company Number: 2005153527

PATIENT
  Age: 64 Year
  Sex: Female
  Weight: 68.9467 kg

DRUGS (10)
  1. BEXTRA [Suspect]
     Indication: ARTHRITIS
     Dosage: 20 MG (20 MG, 1 IN 1 D), ORAL
     Route: 048
     Dates: start: 20021001, end: 20031201
  2. LISINOPRIL [Concomitant]
  3. PHENERGAN [Concomitant]
  4. FLOVENT [Concomitant]
  5. SEREVENT [Concomitant]
  6. ALBUTEROL [Concomitant]
  7. ATROVENT [Concomitant]
  8. ZOSYN [Concomitant]
  9. VIOXX [Concomitant]
  10. PROTONIX [Concomitant]

REACTIONS (2)
  - CORONARY ARTERY DISEASE [None]
  - EMBOLIC STROKE [None]
